FAERS Safety Report 5217620-7 (Version None)
Quarter: 2007Q1

REPORT INFORMATION
  Report Type: 
  Country: None (occurrence: None)
  Receive Date: 20070124
  Receipt Date: 20060524
  Transmission Date: 20070707
  Serious: No
  Sender: FDA-Public Use
  Company Number: US-GLAXOSMITHKLINE-A0606791A

PATIENT
  Age: 67 Year
  Sex: Male

DRUGS (3)
  1. PAXIL CR [Suspect]
     Dosage: 37.5MG PER DAY
     Route: 048
     Dates: start: 20060510
  2. PRILOSEC [Concomitant]
  3. FLOMAX [Concomitant]

REACTIONS (2)
  - CHEST PAIN [None]
  - SOMNOLENCE [None]
